FAERS Safety Report 17099822 (Version 1)
Quarter: 2019Q4

REPORT INFORMATION
  Report Type: Report from Study
  Country: US (occurrence: US)
  Receive Date: 20191202
  Receipt Date: 20191202
  Transmission Date: 20200122
  Serious: No
  Sender: FDA-Public Use
  Company Number: US-DOVA PHARMACEUTICALS INC.-DOV-000327

PATIENT
  Age: 49 Year
  Sex: Female

DRUGS (1)
  1. DOPTELET [Suspect]
     Active Substance: AVATROMBOPAG MALEATE
     Indication: THROMBOCYTOPENIA
     Dosage: 60 MG, QD
     Route: 048
     Dates: start: 20190808

REACTIONS (6)
  - Bone pain [Not Recovered/Not Resolved]
  - Peripheral swelling [Unknown]
  - Pain [Not Recovered/Not Resolved]
  - Vision blurred [Unknown]
  - Sinusitis [Unknown]
  - Swelling [Unknown]

NARRATIVE: CASE EVENT DATE: 201908
